FAERS Safety Report 20850310 (Version 1)
Quarter: 2022Q2

REPORT INFORMATION
  Report Type: Spontaneous
  Country: US (occurrence: US)
  Receive Date: 20220519
  Receipt Date: 20220519
  Transmission Date: 20220721
  Serious: No
  Sender: FDA-Public Use
  Company Number: US-009507513-2205USA002626

PATIENT
  Age: 84 Year
  Sex: Male

DRUGS (2)
  1. MOLNUPIRAVIR [Suspect]
     Active Substance: MOLNUPIRAVIR
     Indication: COVID-19
     Dosage: 200 MG/ ONCE DAILY FOR 5 DAYS
     Route: 048
     Dates: start: 20220504, end: 20220508
  2. NOVOLOG [Suspect]
     Active Substance: INSULIN ASPART
     Dosage: UNK
     Dates: end: 202205

REACTIONS (3)
  - Blood glucose decreased [Recovered/Resolved]
  - Drug interaction [Unknown]
  - Underdose [Unknown]

NARRATIVE: CASE EVENT DATE: 20220504
